FAERS Safety Report 5093783-1 (Version None)
Quarter: 2006Q3

REPORT INFORMATION
  Report Type: 
  Country: None (occurrence: None)
  Receive Date: 20060728
  Receipt Date: 20060512
  Transmission Date: 20061208
  Serious: No
  Sender: FDA-Public Use
  Company Number: 253331

PATIENT
  Age: 56 Year
  Sex: Female
  Weight: 79.8 kg

DRUGS (5)
  1. LEVEMIR [Suspect]
     Indication: INSULIN-REQUIRING TYPE II DIABETES MELLITUS
     Dosage: 39 IU, QD, SUBCUTANEOUS
     Route: 058
     Dates: start: 20060510
  2. NOVOLOG [Concomitant]
  3. METFORMIN HCL [Concomitant]
  4. TOPROL-XL [Concomitant]
  5. ACUPRIL /00810601/ (QUINAPRIL) [Concomitant]

REACTIONS (1)
  - INJECTION SITE ERYTHEMA [None]
